FAERS Safety Report 5747590-4 (Version None)
Quarter: 2008Q2

REPORT INFORMATION
  Report Type: 
  Country: None (occurrence: None)
  Receive Date: 20080523
  Receipt Date: 20080523
  Transmission Date: 20081010
  Serious: Yes (Death)
  Sender: FDA-Public Use
  Company Number: None

PATIENT
  Age: 53 Year
  Sex: Female
  Weight: 71 kg

DRUGS (8)
  1. HEPARIN [Suspect]
     Indication: HEART VALVE OPERATION
     Dosage: 20K UNITS
     Dates: start: 20080104
  2. LOVENOX [Suspect]
     Indication: HEART VALVE OPERATION
     Dosage: 40 MG SQ DAILY
     Route: 058
     Dates: start: 20080105
  3. LOVENOX [Suspect]
     Indication: HEART VALVE OPERATION
     Dosage: 40 MG SQ DAILY
     Route: 058
     Dates: start: 20080106
  4. LOVENOX [Suspect]
     Indication: HEART VALVE OPERATION
     Dosage: 40 MG SQ DAILY
     Route: 058
     Dates: start: 20080108
  5. LOVENOX [Suspect]
     Indication: HEART VALVE OPERATION
     Dosage: 40 MG SQ DAILY
     Route: 058
     Dates: start: 20080109
  6. LOVENOX [Suspect]
     Indication: HEART VALVE OPERATION
     Dosage: 40 MG SQ DAILY
     Route: 058
     Dates: start: 20080110
  7. LOVENOX [Suspect]
     Indication: HEART VALVE OPERATION
     Dosage: 40 MG SQ DAILY
     Route: 058
     Dates: start: 20080111
  8. TERUMO OXYGENATOR + TUBING PACK [Concomitant]

REACTIONS (4)
  - INTRAVENTRICULAR HAEMORRHAGE [None]
  - PLATELET COUNT DECREASED [None]
  - SUBARACHNOID HAEMORRHAGE [None]
  - UNRESPONSIVE TO STIMULI [None]
